FAERS Safety Report 11610651 (Version 1)
Quarter: 2015Q4

REPORT INFORMATION
  Report Type: Report from Study
  Country: CA (occurrence: CA)
  Receive Date: 20151008
  Receipt Date: 20151008
  Transmission Date: 20160304
  Serious: Yes (Hospitalization, Other)
  Sender: FDA-Public Use
  Company Number: CA-ABBVIE-15P-028-1475873-00

PATIENT
  Age: 68 Year
  Sex: Male

DRUGS (1)
  1. HUMIRA [Suspect]
     Active Substance: ADALIMUMAB
     Indication: RHEUMATOID ARTHRITIS
     Route: 058
     Dates: start: 20070727

REACTIONS (9)
  - Knee arthroplasty [Unknown]
  - Coronary artery occlusion [Recovered/Resolved]
  - Fall [Recovered/Resolved]
  - Arthralgia [Not Recovered/Not Resolved]
  - Myocardial infarction [Recovered/Resolved]
  - Stress [Recovered/Resolved]
  - Hip fracture [Unknown]
  - Wrist fracture [Unknown]
  - Animal bite [Unknown]

NARRATIVE: CASE EVENT DATE: 2014
